FAERS Safety Report 8596271-0 (Version None)
Quarter: 2012Q3

REPORT INFORMATION
  Report Type: 
  Country: None (occurrence: None)
  Receive Date: 20120815
  Receipt Date: 20120801
  Transmission Date: 20120928
  Serious: Yes (Hospitalization, Other)
  Sender: FDA-Public Use
  Company Number: JP-WATSON-2012-14106

PATIENT
  Age: 68 Year
  Sex: Female

DRUGS (7)
  1. TACROLIMUS [Suspect]
     Dosage: 2 MG, DAILY
     Route: 065
  2. PREDNISOLONE [Suspect]
     Indication: SCLERODERMA
     Dosage: 45 MG, DAILY
     Route: 065
  3. PREDNISOLONE [Suspect]
     Dosage: 3 MG, DAILY
     Route: 065
  4. PREDNISOLONE [Suspect]
     Dosage: 30 MG, DAILY
     Route: 065
  5. PREDNISOLONE [Suspect]
     Dosage: 2.5 MG, DAILY
     Route: 065
  6. TACROLIMUS [Suspect]
     Indication: SYSTEMIC SCLEROSIS
     Dosage: 1 MG, DAILY
     Route: 065
  7. TACROLIMUS [Suspect]
     Dosage: 3 MG, DAILY
     Route: 065

REACTIONS (3)
  - SCLERODERMA RENAL CRISIS [None]
  - RENAL FAILURE [None]
  - THROMBOCYTOPENIA [None]
